FAERS Safety Report 4695845-7 (Version None)
Quarter: 2005Q2

REPORT INFORMATION
  Report Type: 
  Country: None (occurrence: None)
  Receive Date: 20050621
  Receipt Date: 20050615
  Transmission Date: 20051028
  Serious: Yes (Hospitalization)
  Sender: FDA-Public Use
  Company Number: PHBS2005JP08647

PATIENT
  Age: 20 Year
  Sex: Female

DRUGS (2)
  1. BROMOCRIPTINE MESYLATE [Suspect]
     Indication: PROLACTINOMA
  2. BROMOCRIPTINE MESYLATE [Suspect]
     Dosage: 2.5 MG, QD

REACTIONS (5)
  - ABSCESS [None]
  - AMENORRHOEA [None]
  - NUCLEAR MAGNETIC RESONANCE IMAGING ABNORMAL [None]
  - PITUITARY TUMOUR REMOVAL [None]
  - PURULENT DISCHARGE [None]
